FAERS Safety Report 8492818-3 (Version None)
Quarter: 2012Q3

REPORT INFORMATION
  Report Type: 
  Country: None (occurrence: None)
  Receive Date: 20120706
  Receipt Date: 20120627
  Transmission Date: 20120928
  Serious: Yes (Other)
  Sender: FDA-Public Use
  Company Number: US-JNJFOC-20120519529

PATIENT
  Sex: Male
  Weight: 97.98 kg

DRUGS (7)
  1. NEXIUM [Concomitant]
     Route: 065
  2. ZYTIGA [Suspect]
     Route: 048
     Dates: start: 20120213, end: 20120320
  3. CARTIA XT [Concomitant]
     Route: 065
  4. LOVENOX [Concomitant]
     Route: 065
  5. LASIX [Concomitant]
     Route: 065
  6. ZYTIGA [Suspect]
     Indication: PROSTATE CANCER
     Route: 048
     Dates: start: 20120409
  7. FLOMAX [Concomitant]
     Route: 065

REACTIONS (1)
  - SYNCOPE [None]
